FAERS Safety Report 6333317-4 (Version None)
Quarter: 2009Q3

REPORT INFORMATION
  Report Type: 
  Country: None (occurrence: None)
  Receive Date: 20090828
  Receipt Date: 20090824
  Transmission Date: 20100115
  Serious: Yes (Death, Hospitalization, Other)
  Sender: FDA-Public Use
  Company Number: FR-ROCHE-592768

PATIENT
  Sex: Male
  Weight: 77 kg

DRUGS (8)
  1. MYCOPHENOLATE MOFETIL [Suspect]
     Indication: LIVER TRANSPLANT
     Route: 048
     Dates: start: 20080715
  2. MYCOPHENOLATE MOFETIL [Suspect]
     Dosage: LAST DOSE PRIOR TO SAE(HYPERTHERMIA): 08 SEPTEMBER 2008
     Route: 048
     Dates: start: 20080822
  3. MYCOPHENOLATE MOFETIL [Suspect]
     Dosage: PERMANENTLY DISCONTINUED ON 10 OCTOBER 2008.
     Route: 048
     Dates: end: 20080924
  4. CORTANCYL [Suspect]
     Indication: LIVER TRANSPLANT
     Route: 048
     Dates: start: 20080715
  5. CORTANCYL [Suspect]
     Route: 048
     Dates: start: 20080815
  6. MORPHINE [Suspect]
     Indication: DRUG USE FOR UNKNOWN INDICATION
     Route: 065
  7. ZEFFIX [Concomitant]
     Dates: start: 20080809, end: 20081017
  8. LASIX [Concomitant]
     Dates: start: 20080902, end: 20081016

REACTIONS (12)
  - ASCITES [None]
  - ASTHENIA [None]
  - CONDITION AGGRAVATED [None]
  - CONFUSIONAL STATE [None]
  - DYSPNOEA [None]
  - HAEMOGLOBIN DECREASED [None]
  - HALLUCINATION [None]
  - HEPATIC ARTERY THROMBOSIS [None]
  - HYPERTHERMIA [None]
  - INSOMNIA [None]
  - PLEURAL EFFUSION [None]
  - RENAL FAILURE [None]
